FAERS Safety Report 16341044 (Version 1)
Quarter: 2019Q2

REPORT INFORMATION
  Report Type: Spontaneous
  Country: CN (occurrence: CN)
  Receive Date: 20190522
  Receipt Date: 20190522
  Transmission Date: 20190711
  Serious: Yes (Other)
  Sender: FDA-Public Use
  Company Number: CN-ACS-001427

PATIENT
  Age: 40 Year
  Sex: Male
  Weight: 65 kg

DRUGS (3)
  1. MEROPENEM. [Suspect]
     Active Substance: MEROPENEM
     Indication: EVIDENCE BASED TREATMENT
     Route: 042
  2. 1% SILVER SULFADIAZINE CREAM [Concomitant]
     Indication: WOUND TREATMENT
     Route: 061
  3. TIGECYCLINE. [Concomitant]
     Active Substance: TIGECYCLINE
     Indication: KLEBSIELLA INFECTION
     Route: 042

REACTIONS (3)
  - Activated partial thromboplastin time prolonged [Recovered/Resolved]
  - Coagulopathy [Recovered/Resolved]
  - Haemorrhage [Recovered/Resolved]
